FAERS Safety Report 6358613-6 (Version None)
Quarter: 2009Q3

REPORT INFORMATION
  Report Type: 
  Country: None (occurrence: None)
  Receive Date: 20090914
  Receipt Date: 20090901
  Transmission Date: 20100115
  Serious: Yes (Death)
  Sender: FDA-Public Use
  Company Number: 2009AL002607

PATIENT
  Sex: Male

DRUGS (6)
  1. DIGOXIN [Suspect]
     Dosage: PO
     Route: 048
     Dates: start: 20070101
  2. VICODIN [Concomitant]
  3. PRILOSEC [Concomitant]
  4. LORTAB [Concomitant]
  5. VYTORIN [Concomitant]
  6. AVAPRO [Concomitant]

REACTIONS (3)
  - ECONOMIC PROBLEM [None]
  - INJURY [None]
  - SURGERY [None]
